FAERS Safety Report 23735984 (Version 1)
Quarter: 2024Q2

REPORT INFORMATION
  Report Type: Spontaneous
  Country: US (occurrence: None)
  Receive Date: 20240411
  Receipt Date: 20240411
  Transmission Date: 20240716
  Serious: No
  Sender: FDA-Public Use
  Company Number: None

PATIENT
  Age: 30 Year
  Sex: Male
  Weight: 72 kg

DRUGS (1)
  1. VTAMA [Suspect]
     Active Substance: TAPINAROF
     Indication: Psoriasis
     Dosage: FREQUENCY : AT BEDTIME;?
     Route: 061
     Dates: start: 20240403, end: 20240408

REACTIONS (4)
  - Migraine [None]
  - Pain [None]
  - Fatigue [None]
  - Loss of personal independence in daily activities [None]

NARRATIVE: CASE EVENT DATE: 20240404
